FAERS Safety Report 4595758-5 (Version None)
Quarter: 2005Q1

REPORT INFORMATION
  Report Type: 
  Country: None (occurrence: None)
  Receive Date: 20050224
  Receipt Date: 20050208
  Transmission Date: 20050727
  Serious: Yes (Hospitalization)
  Sender: FDA-Public Use
  Company Number: DSA_25647_2005

PATIENT
  Age: 91 Year
  Sex: Female

DRUGS (5)
  1. DILTIAZEM HYDROCHLORIDE [Suspect]
     Indication: ESSENTIAL HYPERTENSION
     Dosage: 200 MG Q DAY PO
     Route: 048
     Dates: end: 20040429
  2. LASILIX [Suspect]
     Indication: ESSENTIAL HYPERTENSION
     Dosage: 20 MG Q DAY PO
     Route: 048
     Dates: end: 20040429
  3. ADALIX [Suspect]
     Indication: ESSENTIAL HYPERTENSION
     Dosage: 50 MG Q DAY PO
     Route: 048
     Dates: end: 20040429
  4. HYPERIUM [Suspect]
     Indication: ESSENTIAL HYPERTENSION
     Dosage: 1 MG BID PO
     Route: 048
     Dates: end: 20040429
  5. APROVEL [Suspect]
     Indication: ESSENTIAL HYPERTENSION
     Dosage: DF PO
     Route: 048
     Dates: end: 20040429

REACTIONS (4)
  - CONFUSIONAL STATE [None]
  - HYPONATRAEMIA [None]
  - MEMORY IMPAIRMENT [None]
  - MENTAL IMPAIRMENT [None]
